FAERS Safety Report 11907794 (Version 1)
Quarter: 2016Q1

REPORT INFORMATION
  Report Type: Report from Study
  Country: US (occurrence: US)
  Receive Date: 20160111
  Receipt Date: 20160111
  Transmission Date: 20160526
  Serious: No
  Sender: FDA-Public Use
  Company Number: US-ABBVIE-15P-163-1489120-00

PATIENT
  Sex: Female

DRUGS (1)
  1. DUOPA [Suspect]
     Active Substance: CARBIDOPA\LEVODOPA
     Indication: PARKINSON^S DISEASE
     Route: 050
     Dates: start: 20151014

REACTIONS (9)
  - Neuropathy peripheral [Unknown]
  - Decreased appetite [Unknown]
  - On and off phenomenon [Unknown]
  - Victim of spousal abuse [Unknown]
  - Mobility decreased [Unknown]
  - Dyskinesia [Unknown]
  - Tremor [Unknown]
  - Aphonia [Unknown]
  - Drug effect incomplete [Unknown]
